FAERS Safety Report 5035144-7 (Version None)
Quarter: 2006Q2

REPORT INFORMATION
  Report Type: 
  Country: None (occurrence: None)
  Receive Date: 20060622
  Receipt Date: 20060613
  Transmission Date: 20061013
  Serious: Yes (Hospitalization)
  Sender: FDA-Public Use
  Company Number: 2006-06-0736

PATIENT
  Age: 47 Year
  Sex: Female
  Weight: 82 kg

DRUGS (2)
  1. PEG-INTRON [Suspect]
     Indication: HEPATITIS C
     Dosage: 150 MG SUBCUTANEOUS
     Route: 058
     Dates: start: 20060421
  2. REBETOL [Suspect]
     Indication: HEPATITIS C
     Dosage: 200 MG ORAL
     Route: 048
     Dates: start: 20060421

REACTIONS (1)
  - MYELOPATHY [None]
